FAERS Safety Report 9773785 (Version 2)
Quarter: 2013Q4

REPORT INFORMATION
  Report Type: Spontaneous
  Country: FR (occurrence: FR)
  Receive Date: 20131219
  Receipt Date: 20131219
  Transmission Date: 20140711
  Serious: Yes (Disabling)
  Sender: FDA-Public Use
  Company Number: FR-ROCHE-1300353

PATIENT
  Age: 41 Year
  Sex: Female
  Weight: 98 kg

DRUGS (1)
  1. ZELBORAF [Suspect]
     Indication: METASTATIC MALIGNANT MELANOMA
     Route: 048
     Dates: start: 20130906

REACTIONS (3)
  - Furuncle [Not Recovered/Not Resolved]
  - Tremor [Not Recovered/Not Resolved]
  - Folliculitis [Not Recovered/Not Resolved]
